FAERS Safety Report 6478195-8 (Version None)
Quarter: 2009Q4

REPORT INFORMATION
  Report Type: 
  Country: None (occurrence: None)
  Receive Date: 20091202
  Receipt Date: 20091120
  Transmission Date: 20100525
  Serious: Yes (Other)
  Sender: FDA-Public Use
  Company Number: DE-GDP-09407030

PATIENT
  Age: 59 Year
  Sex: Female

DRUGS (2)
  1. METVIX (METHYL AMINOLEVULINATE HYDROCHLORIDE) 16 % [Suspect]
     Indication: BASAL CELL CARCINOMA
     Dosage: 1 DF TOPICAL, (1 DF TOPICAL)
     Route: 061
     Dates: start: 20090824, end: 20090824
  2. METVIX (METHYL AMINOLEVULINATE HYDROCHLORIDE) 16 % [Suspect]
     Indication: BASAL CELL CARCINOMA
     Dosage: 1 DF TOPICAL, (1 DF TOPICAL)
     Route: 061
     Dates: start: 20090831, end: 20090831

REACTIONS (4)
  - BLISTER [None]
  - MALAISE [None]
  - PYREXIA [None]
  - RASH PUSTULAR [None]
